FAERS Safety Report 8861523 (Version 1)
Quarter: 2012Q4

REPORT INFORMATION
  Report Type: Spontaneous
  Country: US (occurrence: None)
  Receive Date: 20121022
  Receipt Date: 20121022
  Transmission Date: 20130627
  Serious: Yes (Other)
  Sender: FDA-Public Use
  Company Number: JPI-P-025298

PATIENT
  Age: 32 Year
  Sex: Female
  Weight: 101.61 kg

DRUGS (4)
  1. XYREM [Suspect]
     Indication: CATAPLEXY
     Route: 048
     Dates: start: 20060922, end: 200610
  2. ALPRAZOLAM [Concomitant]
  3. VITAMIN A [Concomitant]
  4. VITAMIN D [Concomitant]

REACTIONS (8)
  - Crying [None]
  - Anxiety [None]
  - Pregnancy [None]
  - Maternal exposure during pregnancy [None]
  - Caesarean section [None]
  - Victim of sexual abuse [None]
  - Back injury [None]
  - Back pain [None]
